FAERS Safety Report 24937400 (Version 2)
Quarter: 2025Q4

REPORT INFORMATION
  Report Type: Spontaneous
  Country: US (occurrence: US)
  Receive Date: 20250206
  Receipt Date: 20251006
  Transmission Date: 20260118
  Serious: Yes (Other)
  Sender: BRISTOL-MYERS SQUIBB COMPANY
  Company Number: US-BRISTOL-MYERS SQUIBB COMPANY-2025-017324

PATIENT
  Age: 72 Year
  Sex: Female

DRUGS (3)
  1. POMALYST [Suspect]
     Active Substance: POMALIDOMIDE
     Indication: Plasma cell myeloma recurrent
     Dosage: TAKE 1 CAPSULE BY MOUTH 1 TIME A DAY FOR 7 DAYS ON, THEN 7 DAYS OFF AND REPEAT
     Dates: start: 202301
  2. POMALYST [Suspect]
     Active Substance: POMALIDOMIDE
     Dosage: TAKE 1 CAPSULE BY MOUTH 1 TIME A DAY FOR 7 DAYS ON, THEN 7 DAYS OFF AND REPEAT.
  3. NINLARO [Concomitant]
     Active Substance: IXAZOMIB CITRATE
     Indication: Product used for unknown indication
     Dosage: TAKE1 CAPSULE BY MOUTH ON DAYS 1 AND 15 OF A 28-DAY CYCLE. TAKE ON AN EMPTY STOMACH 1 HOUR BEFORE OR 2HOURS AFTER EATING.

REACTIONS (1)
  - Thrombosis [Unknown]

NARRATIVE: CASE EVENT DATE: 20250101
